FAERS Safety Report 5008410-9 (Version None)
Quarter: 2006Q2

REPORT INFORMATION
  Report Type: 
  Country: None (occurrence: None)
  Receive Date: 20060523
  Receipt Date: 20040827
  Transmission Date: 20061013
  Serious: Yes (Other)
  Sender: FDA-Public Use
  Company Number: PHBS2004NO11485

PATIENT
  Age: 50 Year
  Sex: Female

DRUGS (5)
  1. ZOMETA [Suspect]
     Indication: HYPERCALCAEMIA OF MALIGNANCY
     Dosage: 4 MG, QMO
     Route: 065
     Dates: start: 20021101, end: 20040825
  2. ADRIAMYCIN PFS [Concomitant]
     Dosage: 20 MG, QW, TOTALLY 20 CYCLES
     Dates: end: 20030401
  3. STEROIDS NOS [Concomitant]
  4. TAXOTERE [Concomitant]
     Dosage: 120 X 3
     Dates: start: 20030401
  5. PREDNISOLONE [Concomitant]
     Dosage: 25 MG 2/1 DAY,PERIODIC TREATMENT
     Route: 065

REACTIONS (8)
  - BONE DISORDER [None]
  - BREATH ODOUR [None]
  - FISTULA [None]
  - IMPAIRED HEALING [None]
  - ORAL PAIN [None]
  - OSTEONECROSIS [None]
  - TOOTH DISORDER [None]
  - TOOTH EXTRACTION [None]
